FAERS Safety Report 26117642 (Version 1)
Quarter: 2025Q4

REPORT INFORMATION
  Report Type: Report from Study
  Country: US (occurrence: US)
  Receive Date: 20251203
  Receipt Date: 20251203
  Transmission Date: 20260118
  Serious: Yes (Hospitalization, Other)
  Sender: ELI LILLY AND COMPANY
  Company Number: US-ELI_LILLY_AND_COMPANY-US202212004774

PATIENT
  Age: 61 Year
  Sex: Female

DRUGS (12)
  1. VERZENIO [Suspect]
     Active Substance: ABEMACICLIB
     Indication: Breast cancer metastatic
     Dosage: 150 MG, BID
     Route: 048
     Dates: start: 20221203
  2. VERZENIO [Suspect]
     Active Substance: ABEMACICLIB
     Dosage: 150 MG, BID
     Route: 048
  3. VERZENIO [Suspect]
     Active Substance: ABEMACICLIB
     Dosage: 150 MG, BID
     Route: 048
  4. VERZENIO [Suspect]
     Active Substance: ABEMACICLIB
     Dosage: 150 MG, BID
     Route: 048
  5. VERZENIO [Suspect]
     Active Substance: ABEMACICLIB
     Dosage: 100 MG, BID
     Route: 048
     Dates: start: 20230523
  6. VERZENIO [Suspect]
     Active Substance: ABEMACICLIB
     Dosage: 100 MG, BID
     Route: 048
  7. VERZENIO [Suspect]
     Active Substance: ABEMACICLIB
     Dosage: 100 MG, BID
     Route: 048
  8. VERZENIO [Suspect]
     Active Substance: ABEMACICLIB
     Dosage: 100 MG, BID
     Route: 048
  9. VERZENIO [Suspect]
     Active Substance: ABEMACICLIB
     Dosage: 100 MG, BID
     Route: 048
     Dates: end: 20240729
  10. VERZENIO [Suspect]
     Active Substance: ABEMACICLIB
     Dosage: 100 MG, BID
     Route: 048
     Dates: end: 20250912
  11. LETROZOLE [Concomitant]
     Active Substance: LETROZOLE
     Indication: Hormone receptor positive breast cancer
     Dosage: UNK, UNKNOWN
     Route: 065
     Dates: start: 20200601
  12. IBUPROFEN [Concomitant]
     Active Substance: IBUPROFEN
     Indication: Product used for unknown indication

REACTIONS (28)
  - Cystitis [Unknown]
  - Diverticulitis [Unknown]
  - Pneumocystis jirovecii infection [Recovered/Resolved]
  - Malignant neoplasm progression [Unknown]
  - Kidney infection [Unknown]
  - Immunosuppression [Unknown]
  - Neuropathy peripheral [Not Recovered/Not Resolved]
  - Anorectal discomfort [Not Recovered/Not Resolved]
  - Nail growth abnormal [Not Recovered/Not Resolved]
  - Pain [Recovering/Resolving]
  - Haemorrhage [Unknown]
  - Diarrhoea haemorrhagic [Recovered/Resolved]
  - Synovitis [Unknown]
  - Meniscus injury [Unknown]
  - Ligament sprain [Unknown]
  - Tendonitis [Unknown]
  - Onychalgia [Not Recovered/Not Resolved]
  - Nail discolouration [Not Recovered/Not Resolved]
  - Constipation [Not Recovered/Not Resolved]
  - Onychoclasis [Not Recovered/Not Resolved]
  - Diarrhoea [Not Recovered/Not Resolved]
  - Alopecia [Not Recovered/Not Resolved]
  - Alopecia [Not Recovered/Not Resolved]
  - Diarrhoea [Not Recovered/Not Resolved]
  - Vomiting [Unknown]
  - Dizziness [Not Recovered/Not Resolved]
  - Pneumonia [Unknown]
  - Urinary tract infection [Unknown]

NARRATIVE: CASE EVENT DATE: 20221207
